FAERS Safety Report 4639836-0 (Version None)
Quarter: 2005Q2

REPORT INFORMATION
  Report Type: 
  Country: None (occurrence: None)
  Receive Date: 20050415
  Receipt Date: 20050406
  Transmission Date: 20051028
  Serious: Yes (Hospitalization)
  Sender: FDA-Public Use
  Company Number: 05P-062-0296869-00

PATIENT
  Sex: Female

DRUGS (3)
  1. SEVOFLURANE [Suspect]
     Indication: ANAESTHESIA
  2. PERFALGA [Concomitant]
  3. PROPOFOL [Concomitant]

REACTIONS (2)
  - BLOOD LACTATE DEHYDROGENASE INCREASED [None]
  - PROTHROMBIN TIME PROLONGED [None]
